FAERS Safety Report 26049222 (Version 1)
Quarter: 2025Q4

REPORT INFORMATION
  Report Type: Spontaneous
  Country: EU (occurrence: EU)
  Receive Date: 20251115
  Receipt Date: 20251115
  Transmission Date: 20260119
  Serious: Yes (Death, Hospitalization)
  Sender: MERCK SHARP & DOHME LLC
  Company Number: EU-AstrazenecaRSG-4106-D7632C00001(Prod)000001

PATIENT
  Age: 70 Year
  Sex: Female
  Weight: 70 kg

DRUGS (9)
  1. PEMBROLIZUMAB [Suspect]
     Active Substance: PEMBROLIZUMAB
     Indication: Non-small cell lung cancer
     Dosage: 200 MG, ONCE EVERY 3 WK
     Route: 042
     Dates: start: 20250916, end: 20250916
  2. OLMESARTAN MEDOXOMIL [Concomitant]
     Active Substance: OLMESARTAN MEDOXOMIL
     Indication: Hypertension
     Dosage: 10 MG, QD
     Route: 048
     Dates: start: 2012
  3. ASPIRIN [Concomitant]
     Active Substance: ASPIRIN
     Indication: Hypertension
     Dosage: 100 MG
     Route: 048
     Dates: start: 2012
  4. TRAMADOL HYDROCHLORIDE [Concomitant]
     Active Substance: TRAMADOL HYDROCHLORIDE
     Indication: Disease progression
     Dosage: 100 MG, QD
     Route: 042
     Dates: start: 20251004, end: 20251004
  5. EPARIN [Concomitant]
     Indication: Disease progression
     Dosage: 5000 IU, QD
     Route: 042
     Dates: start: 20251004, end: 20251004
  6. MORPHINE SULFATE [Concomitant]
     Active Substance: MORPHINE SULFATE
     Indication: Pain
     Dosage: 10 ONCE
     Route: 042
     Dates: start: 20251004, end: 20251004
  7. NOREPINEPHRINE [NOREPINEPHRINE HYDROCHLORIDE] [Concomitant]
     Indication: Disease progression
     Dosage: 6.0 ONCE
     Route: 042
     Dates: start: 20251004, end: 20251004
  8. AUGMENTIN [Concomitant]
     Active Substance: AMOXICILLIN\CLAVULANATE POTASSIUM
     Indication: Cough
     Dosage: 1.0 UNK, TID
     Route: 048
     Dates: start: 20250907, end: 20250914
  9. ROSUVASTATIN CALCIUM [Concomitant]
     Active Substance: ROSUVASTATIN CALCIUM
     Indication: Hypercholesterolaemia
     Dosage: 10 MG
     Route: 048
     Dates: start: 2018

REACTIONS (1)
  - Tumour hyperprogression [Fatal]

NARRATIVE: CASE EVENT DATE: 20251004
